FAERS Safety Report 5151209-3 (Version None)
Quarter: 2006Q4

REPORT INFORMATION
  Report Type: 
  Country: None (occurrence: None)
  Receive Date: 20061114
  Receipt Date: 20061114
  Transmission Date: 20070319
  Serious: No
  Sender: FDA-Public Use
  Company Number: None

PATIENT
  Sex: Female
  Weight: 87.0906 kg

DRUGS (3)
  1. VENOFER [Suspect]
     Indication: ANAEMIA
     Dosage: 300MG  QWEEK X 3   IV DRIP
     Route: 041
     Dates: start: 20061109, end: 20061109
  2. VENOFER [Suspect]
     Indication: CAESAREAN SECTION
     Dosage: 300MG  QWEEK X 3   IV DRIP
     Route: 041
     Dates: start: 20061109, end: 20061109
  3. VENOFER [Suspect]
     Indication: PREGNANCY
     Dosage: 300MG  QWEEK X 3   IV DRIP
     Route: 041
     Dates: start: 20061109, end: 20061109

REACTIONS (5)
  - CHEST DISCOMFORT [None]
  - DRUG EXPOSURE DURING PREGNANCY [None]
  - INFUSION RELATED REACTION [None]
  - NAUSEA [None]
  - VOMITING [None]
